FAERS Safety Report 4311115-0 (Version None)
Quarter: 2004Q1

REPORT INFORMATION
  Report Type: 
  Country: None (occurrence: None)
  Receive Date: 20040302
  Receipt Date: 20040218
  Transmission Date: 20041129
  Serious: Yes (Other)
  Sender: FDA-Public Use
  Company Number: 2003112063

PATIENT
  Age: 35 Year
  Sex: Female

DRUGS (2)
  1. ZYRTEC [Suspect]
     Indication: ASTHMA
     Dosage: 10 MG (DAILY), ORAL
     Route: 048
     Dates: end: 20031001
  2. BECLOMETASONE DIPROPIONATE (BECLOMETASONE DIPROPIONATE) [Concomitant]

REACTIONS (2)
  - ALANINE AMINOTRANSFERASE INCREASED [None]
  - HEPATIC STEATOSIS [None]
